FAERS Safety Report 4513746-1 (Version None)
Quarter: 2004Q4

REPORT INFORMATION
  Report Type: 
  Country: None (occurrence: None)
  Receive Date: 20041124
  Receipt Date: 20040910
  Transmission Date: 20050328
  Serious: Yes (Death)
  Sender: FDA-Public Use
  Company Number: 001#1#2004-00186

PATIENT
  Age: 62 Year
  Sex: Female

DRUGS (20)
  1. ALPROSTADIL [Suspect]
     Indication: EXTREMITY NECROSIS
     Dosage: 1.40 MCG (20MCG 2 IN 1 DAY(S))
     Route: 041
     Dates: start: 20040902, end: 20040906
  2. ALPROSTADIL [Suspect]
     Indication: PERIPHERAL VASCULAR DISORDER
     Dosage: 1.40 MCG (20MCG 2 IN 1 DAY(S))
     Route: 041
     Dates: start: 20040902, end: 20040906
  3. SODIUM CHLORIDE [Suspect]
     Indication: EXTREMITY NECROSIS
     Dosage: 50 ML INTRAVENOUS
     Route: 042
     Dates: start: 20040902, end: 20040906
  4. SODIUM CHLORIDE [Suspect]
     Indication: PERIPHERAL VASCULAR DISORDER
     Dosage: 50 ML INTRAVENOUS
     Route: 042
     Dates: start: 20040902, end: 20040906
  5. TACROLIMUS (TACROLIMUS) [Concomitant]
  6. PREDNISOLONE [Concomitant]
  7. ALFACALCIDOL (ALFACALCIDOL) [Concomitant]
  8. PANTOPRAZOL (PANTOPRAZOLE SODIUM) [Concomitant]
  9. SODIUMHYDROGENCARBONATE [Concomitant]
  10. LISINOPRIL [Concomitant]
  11. LEVOTHYROXINE (LEVOTHYROXINE SODIUM) [Concomitant]
  12. ACETOLYT (CALCIUM CITRATE, SODIUM CITRATE) [Concomitant]
  13. AMPHOTERICIN B [Concomitant]
  14. KREON (PANCREATIN) [Concomitant]
  15. CIPROFLOXACIN [Concomitant]
  16. FENTANYL [Concomitant]
  17. ENOXAPARINE (HEPARIN-FRACTION, SODIUM SALT) [Concomitant]
  18. HEPARIN [Concomitant]
  19. PIRITRAMID (PIRITRAMIDE) [Concomitant]
  20. METAMIZOL (METAMIZOLE SODIUM) [Concomitant]

REACTIONS (3)
  - HAEMORRHAGE INTRACRANIAL [None]
  - HEPARIN-INDUCED THROMBOCYTOPENIA [None]
  - PLATELET COUNT DECREASED [None]
